FAERS Safety Report 21367058 (Version 1)
Quarter: 2022Q3

REPORT INFORMATION
  Report Type: Spontaneous
  Country: US (occurrence: US)
  Receive Date: 20220923
  Receipt Date: 20220923
  Transmission Date: 20221027
  Serious: No
  Sender: FDA-Public Use
  Company Number: US-SA-SAC20220919000222

PATIENT
  Sex: Male

DRUGS (1)
  1. DUPIXENT [Suspect]
     Active Substance: DUPILUMAB
     Indication: Dermatitis atopic
     Dosage: 300 MG, QOW
     Route: 058
     Dates: start: 201803

REACTIONS (6)
  - Corneal irritation [Unknown]
  - Lacrimation increased [Unknown]
  - Vision blurred [Unknown]
  - Eye swelling [Unknown]
  - Erythema of eyelid [Unknown]
  - Eye irritation [Unknown]

NARRATIVE: CASE EVENT DATE: 20220901
